FAERS Safety Report 7066576-3 (Version None)
Quarter: 2010Q4

REPORT INFORMATION
  Report Type: 
  Country: None (occurrence: None)
  Receive Date: 20101027
  Receipt Date: 20100817
  Transmission Date: 20110411
  Serious: No
  Sender: FDA-Public Use
  Company Number: US-WYE-H15931110

PATIENT
  Sex: Female
  Weight: 61.29 kg

DRUGS (14)
  1. PREMPRO [Suspect]
     Indication: HOT FLUSH
     Dosage: UNKNOWN
     Route: 048
     Dates: start: 19840101, end: 20091201
  2. NAPROXEN [Suspect]
     Indication: ARTHRITIS
     Route: 048
     Dates: end: 20070601
  3. NAPROXEN [Suspect]
     Route: 048
     Dates: start: 20070701, end: 20100101
  4. LOVASTATIN [Concomitant]
  5. HYDROCHLOROTHIAZIDE [Concomitant]
  6. ACETYLSALICYLIC ACID [Suspect]
     Dosage: UNKNOWN
     Route: 048
     Dates: end: 20070601
  7. ACETYLSALICYLIC ACID [Suspect]
     Dosage: UNKNOWN
     Route: 048
     Dates: start: 20070701
  8. FENTANYL CITRATE [Concomitant]
  9. ACIPHEX [Concomitant]
  10. WELLBUTRIN [Concomitant]
  11. RESTORIL [Concomitant]
  12. MULTI-VITAMINS [Concomitant]
  13. TRICOR [Concomitant]
  14. HYZAAR [Concomitant]

REACTIONS (3)
  - HAEMATOCHEZIA [None]
  - TYPE 2 DIABETES MELLITUS [None]
  - WEIGHT DECREASED [None]
